FAERS Safety Report 9336651 (Version 1)
Quarter: 2013Q2

REPORT INFORMATION
  Report Type: Spontaneous
  Country: FR (occurrence: FR)
  Receive Date: 20130607
  Receipt Date: 20130607
  Transmission Date: 20140414
  Serious: Yes (Other)
  Sender: FDA-Public Use
  Company Number: PHHY2013FR057599

PATIENT
  Age: 43 Year
  Sex: Female

DRUGS (4)
  1. GILENYA [Suspect]
     Indication: MULTIPLE SCLEROSIS
     Dosage: 0.5 MG, QD
     Route: 048
     Dates: start: 20120619
  2. DEROXAT [Suspect]
     Dosage: 1 DF, QD
     Route: 048
     Dates: start: 201205
  3. XANAX [Suspect]
     Dosage: 1 DF, QD
     Route: 048
     Dates: start: 201002
  4. IMOVANE [Suspect]
     Dosage: 1 DF, QD
     Route: 048
     Dates: start: 201103

REACTIONS (1)
  - Loose tooth [Not Recovered/Not Resolved]
